FAERS Safety Report 5955977-X (Version None)
Quarter: 2008Q4

REPORT INFORMATION
  Report Type: 
  Country: None (occurrence: None)
  Receive Date: 20081112
  Receipt Date: 20081030
  Transmission Date: 20090506
  Serious: Yes (Other)
  Sender: FDA-Public Use
  Company Number: FABR-1000478

PATIENT
  Age: 52 Year
  Sex: Male
  Weight: 76 kg

DRUGS (7)
  1. FABRAZYME [Suspect]
     Indication: FABRY'S DISEASE
     Dosage: 74.5 MG, Q2W, INTRAVENOUS
     Route: 042
     Dates: start: 20050721
  2. BISOPROLOL FUMARATE [Concomitant]
  3. MEXILETINE HYDROCHLORIDE (MEXILETINE HYDROCHLORIDE) [Concomitant]
  4. CIPRALAN [Concomitant]
  5. AMIODARONE HCL [Concomitant]
  6. LOXOPROFEN SODIUM (LOXOPROFEN SODIUM) [Concomitant]
  7. FEXOFENADINE HYDROCHLORIDE [Concomitant]

REACTIONS (9)
  - ATRIOVENTRICULAR BLOCK [None]
  - BLOOD PRESSURE DECREASED [None]
  - CARDIAC HYPERTROPHY [None]
  - COLONIC POLYP [None]
  - JOINT SWELLING [None]
  - LARGE INTESTINE CARCINOMA [None]
  - NASOPHARYNGITIS [None]
  - PAIN IN EXTREMITY [None]
  - PROTEIN URINE PRESENT [None]
